FAERS Safety Report 23826843 (Version 1)
Quarter: 2024Q2

REPORT INFORMATION
  Report Type: Spontaneous
  Country: US (occurrence: US)
  Receive Date: 20240507
  Receipt Date: 20240507
  Transmission Date: 20240716
  Serious: Yes (Other)
  Sender: FDA-Public Use
  Company Number: US-PFIZER INC-202400100058

PATIENT
  Age: 44 Year
  Sex: Female

DRUGS (1)
  1. XELJANZ XR [Suspect]
     Active Substance: TOFACITINIB CITRATE
     Dosage: 11MG ORAL DAILY IN THE MORNING
     Route: 048
     Dates: start: 2023

REACTIONS (5)
  - Fall [Recovered/Resolved with Sequelae]
  - Ankle fracture [Not Recovered/Not Resolved]
  - Sinusitis [Recovered/Resolved]
  - Inflammatory marker increased [Not Recovered/Not Resolved]
  - Illness [Unknown]

NARRATIVE: CASE EVENT DATE: 20231201
